FAERS Safety Report 13036565 (Version 3)
Quarter: 2017Q1

REPORT INFORMATION
  Report Type: Report from Study
  Country: US (occurrence: US)
  Receive Date: 20161216
  Receipt Date: 20170104
  Transmission Date: 20170428
  Serious: Yes (Hospitalization, Disabling)
  Sender: FDA-Public Use
  Company Number: PHEH2016US032845

PATIENT
  Age: 46 Year
  Sex: Female
  Weight: 67.57 kg

DRUGS (1)
  1. GILENYA [Suspect]
     Active Substance: FINGOLIMOD HYDROCHLORIDE
     Indication: MULTIPLE SCLEROSIS
     Dosage: 0.5 MG, QD
     Route: 048
     Dates: start: 20161213

REACTIONS (3)
  - Diarrhoea [Unknown]
  - Mobility decreased [Unknown]
  - Monoplegia [Unknown]

NARRATIVE: CASE EVENT DATE: 201612
